FAERS Safety Report 8958130 (Version 2)
Quarter: 2013Q2

REPORT INFORMATION
  Report Type: Spontaneous
  Country: FR (occurrence: FR)
  Receive Date: 20121211
  Receipt Date: 20130405
  Transmission Date: 20140414
  Serious: Yes (Hospitalization)
  Sender: FDA-Public Use
  Company Number: FR-ABBOTT-12P-056-1019227-00

PATIENT
  Age: 3 Year
  Sex: Male

DRUGS (2)
  1. MICROPAKINE L.P. [Suspect]
     Indication: CONVULSION
     Route: 048
     Dates: start: 2009
  2. MICROPAKINE L.P. [Suspect]
     Route: 048
     Dates: start: 2010

REACTIONS (3)
  - Convulsion [Unknown]
  - Drug level decreased [Unknown]
  - Status epilepticus [Unknown]
